FAERS Safety Report 25114250 (Version 2)
Quarter: 2025Q3

REPORT INFORMATION
  Report Type: Report from Study
  Country: CO (occurrence: CO)
  Receive Date: 20250324
  Receipt Date: 20250819
  Transmission Date: 20251020
  Serious: Yes (Hospitalization)
  Sender: EISAI
  Company Number: CO-Eisai-EC-2025-186314

PATIENT
  Age: 37 Year
  Sex: Female
  Weight: 51 kg

DRUGS (7)
  1. LENVIMA [Suspect]
     Active Substance: LENVATINIB
     Indication: Thyroid cancer
     Dates: start: 20250108, end: 20250129
  2. LENVIMA [Suspect]
     Active Substance: LENVATINIB
     Dates: start: 20250206, end: 20250315
  3. LENVIMA [Suspect]
     Active Substance: LENVATINIB
     Dates: start: 20250805
  4. LEVOTHYROXINE SODIUM [Concomitant]
     Active Substance: LEVOTHYROXINE SODIUM
  5. PREGABALIN [Concomitant]
     Active Substance: PREGABALIN
  6. LIDOCAINE [Concomitant]
     Active Substance: LIDOCAINE
  7. TAPENTADOL [Concomitant]
     Active Substance: TAPENTADOL

REACTIONS (6)
  - Abdominal pain upper [Not Recovered/Not Resolved]
  - Spinal pain [Not Recovered/Not Resolved]
  - Nausea [Not Recovered/Not Resolved]
  - Dry skin [Not Recovered/Not Resolved]
  - Vomiting [Not Recovered/Not Resolved]
  - Pain in extremity [Not Recovered/Not Resolved]
